FAERS Safety Report 24549598 (Version 1)
Quarter: 2024Q4

REPORT INFORMATION
  Report Type: Spontaneous
  Country: US (occurrence: None)
  Receive Date: 20241024
  Receipt Date: 20241024
  Transmission Date: 20250115
  Serious: Yes (Death)
  Sender: Public
  Company Number: None

PATIENT
  Age: 83 Year
  Sex: Female

DRUGS (23)
  1. PIRFENIDONE [Suspect]
     Active Substance: PIRFENIDONE
     Indication: Idiopathic pulmonary fibrosis
     Dosage: FREQUENCY : 3 TIMES A DAY;?
     Route: 048
     Dates: start: 20190705, end: 20230921
  2. PANTOPRAZOLE [Concomitant]
     Active Substance: PANTOPRAZOLE
  3. ATORVASTATIN [Concomitant]
     Active Substance: ATORVASTATIN
  4. FOSAMAX [Concomitant]
     Active Substance: ALENDRONATE SODIUM
  5. MIRALAX [Concomitant]
     Active Substance: POLYETHYLENE GLYCOL 3350
  6. SEPTRA DS [Concomitant]
     Active Substance: SULFAMETHOXAZOLE\TRIMETHOPRIM
  7. DUONEB [Concomitant]
     Active Substance: ALBUTEROL SULFATE\IPRATROPIUM BROMIDE
  8. HYOSCYAMINE [Concomitant]
     Active Substance: HYOSCYAMINE
  9. LEVOTHYROXINE [Concomitant]
     Active Substance: LEVOTHYROXINE
  10. ALBUTEROL SULFATE [Concomitant]
     Active Substance: ALBUTEROL SULFATE
  11. FUROSEMIDE [Concomitant]
     Active Substance: FUROSEMIDE
  12. PREDNISONE [Concomitant]
     Active Substance: PREDNISONE
  13. ONDANSETRON [Concomitant]
     Active Substance: ONDANSETRON
  14. HALDOL [Concomitant]
     Active Substance: HALOPERIDOL
  15. BISACODYL [Concomitant]
     Active Substance: BISACODYL
  16. ACETAMINOPHEN [Concomitant]
     Active Substance: ACETAMINOPHEN
  17. BENZONATATE [Concomitant]
     Active Substance: BENZONATATE
  18. mineral enema [Concomitant]
  19. ALVESCO [Concomitant]
     Active Substance: CICLESONIDE
  20. ANUSOL NOS [Concomitant]
     Active Substance: BALSAM PERU\BENZYL BENZOATE\BISMUTH HYDROXIDE\BISMUTH SUBGALLATE\HYDROCORTISONE ACETATE\ZINC OXIDE
  21. sennosides- docusate sodium [Concomitant]
  22. artificial tears [Concomitant]
  23. OXYGEN [Concomitant]
     Active Substance: OXYGEN

REACTIONS (2)
  - Hospice care [None]
  - Dyspnoea [None]

NARRATIVE: CASE EVENT DATE: 20230921
